FAERS Safety Report 9153531 (Version 1)
Quarter: 2013Q1

REPORT INFORMATION
  Report Type: Spontaneous
  Country: US (occurrence: None)
  Receive Date: 20130204
  Receipt Date: 20130204
  Transmission Date: 20140127
  Serious: Yes (Hospitalization)
  Sender: FDA-Public Use
  Company Number: AUR-APL-2013-01081

PATIENT
  Age: 80 Year
  Sex: Female

DRUGS (3)
  1. CEFTRIAXONE (CEFTRIAXONE) [Suspect]
     Indication: BRONCHOPNEUMONIA
     Dates: start: 20121126, end: 20121201
  2. CEFTRIAXONE (CEFTRIAXONE) [Suspect]
     Indication: BRONCHOPNEUMONIA
     Dates: start: 20121126, end: 20121201
  3. LEVOFLOXACIN [Suspect]

REACTIONS (1)
  - Renal failure [None]
